FAERS Safety Report 5298288-0 (Version None)
Quarter: 2007Q2

REPORT INFORMATION
  Report Type: 
  Country: None (occurrence: None)
  Receive Date: 20070409
  Receipt Date: 20070329
  Transmission Date: 20071010
  Serious: Yes (Death)
  Sender: FDA-Public Use
  Company Number: 239100

PATIENT
  Age: 64 Year
  Sex: Female

DRUGS (1)
  1. MABTHERA (RITUXIMB) CONCENTRATE FOR SOLUTION FOR INFUSION [Suspect]
     Indication: ARTHRITIS
     Dosage: 2 TIMES, 2 WEEKS APART, UNK
     Dates: start: 20060913, end: 20060927

REACTIONS (10)
  - ABDOMINAL PAIN [None]
  - COLON GANGRENE [None]
  - CONSTIPATION [None]
  - DEHYDRATION [None]
  - GASTRIC ULCER [None]
  - LARGE INTESTINAL ULCER [None]
  - MESENTERIC OCCLUSION [None]
  - NO THERAPEUTIC RESPONSE [None]
  - PYREXIA [None]
  - SEPSIS [None]
